FAERS Safety Report 8560248-1 (Version None)
Quarter: 2012Q3

REPORT INFORMATION
  Report Type: 
  Country: None (occurrence: None)
  Receive Date: 20120727
  Receipt Date: 20120727
  Transmission Date: 20120928
  Serious: Yes (Hospitalization)
  Sender: FDA-Public Use
  Company Number: None

PATIENT
  Age: 67 Year
  Sex: Female
  Weight: 100.4 kg

DRUGS (13)
  1. ZETIA [Concomitant]
  2. DIGOXIN [Concomitant]
  3. LYRICA [Concomitant]
  4. METHOTREXATE [Concomitant]
  5. ATENOLOL [Concomitant]
  6. CYMBALTA [Concomitant]
  7. CARDIZEM CD [Concomitant]
  8. LISINOPRIL AND HYDROCHLOROTHIAZIDE [Concomitant]
  9. TYLENOL ARTHRITIS [Concomitant]
  10. COUMADIN [Suspect]
     Indication: ATRIAL FIBRILLATION
     Dosage: 3 MG ALTERNATING, PO 6 MG ALTERNATING, PO
     Route: 048
  11. AMITRIPTYLINE HCL [Concomitant]
  12. VIT D3 [Concomitant]
  13. ENBREL [Concomitant]

REACTIONS (4)
  - LOWER GASTROINTESTINAL HAEMORRHAGE [None]
  - INTERNATIONAL NORMALISED RATIO DECREASED [None]
  - GASTRODUODENAL ULCER [None]
  - ANAEMIA [None]
